FAERS Safety Report 25483523 (Version 3)
Quarter: 2025Q3

REPORT INFORMATION
  Report Type: Report from Study
  Country: EU (occurrence: EU)
  Receive Date: 20250626
  Receipt Date: 20250708
  Transmission Date: 20251021
  Serious: Yes (Hospitalization)
  Sender: ALNYLAM PHARMACEUTICALS
  Company Number: EU-ALNYLAM PHARMACEUTICALS, INC.-ALN-2025-003967

PATIENT

DRUGS (15)
  1. OXLUMO [Suspect]
     Active Substance: LUMASIRAN
     Indication: Primary hyperoxaluria
     Route: 065
     Dates: start: 20210713, end: 20210713
  2. OXLUMO [Suspect]
     Active Substance: LUMASIRAN
     Route: 065
     Dates: start: 20240913, end: 20240913
  3. NEDOSIRAN [Concomitant]
     Active Substance: NEDOSIRAN
     Indication: Primary hyperoxaluria
     Route: 065
     Dates: start: 20230818
  4. VITAMIN B6 [Concomitant]
     Active Substance: PYRIDOXINE HYDROCHLORIDE
     Indication: Primary hyperoxaluria
     Dosage: 100 MILLIGRAM, QD
     Route: 065
     Dates: start: 20220607
  5. SODIUM CITRATE [Concomitant]
     Active Substance: SODIUM CITRATE
     Indication: Primary hyperoxaluria
     Dosage: 1 GRAM, TID
     Route: 065
     Dates: start: 20211209, end: 20250126
  6. OMEPRAZOLE [Concomitant]
     Active Substance: OMEPRAZOLE
     Indication: Gastrointestinal disorder prophylaxis
     Dosage: 10 MILLILITER, BID
     Route: 048
     Dates: start: 20220807
  7. OMNITROPE [Concomitant]
     Active Substance: SOMATROPIN
     Indication: Growth hormone deficiency
     Dosage: 1 MILLIGRAM, QD
     Route: 058
     Dates: start: 20221006, end: 20250212
  8. OMNITROPE [Concomitant]
     Active Substance: SOMATROPIN
     Dosage: 1.25 MILLIGRAM, QD
     Route: 058
     Dates: start: 20250213
  9. TRIMETHOPRIM [Concomitant]
     Active Substance: TRIMETHOPRIM
     Indication: Antibiotic prophylaxis
     Dosage: 36 MILLIGRAM, QD
     Route: 048
     Dates: start: 20231120
  10. ASPIRIN [Concomitant]
     Active Substance: ASPIRIN
     Indication: Platelet aggregation abnormal
     Dosage: 17 MILLIGRAM, QD
     Route: 048
     Dates: start: 20190710
  11. Soluvit novum [Concomitant]
     Indication: Vitamin supplementation
     Dosage: 1 MILLILITER, QD
     Route: 048
     Dates: start: 20220214, end: 20250516
  12. Soluvit novum [Concomitant]
     Route: 048
     Dates: start: 20250517
  13. KEPPRA [Concomitant]
     Active Substance: LEVETIRACETAM
     Indication: Seizure prophylaxis
     Dosage: 450 MILLIGRAM, BID
     Route: 048
     Dates: start: 20230124
  14. ARANESP [Concomitant]
     Active Substance: DARBEPOETIN ALFA
     Indication: Nephrogenic anaemia
     Dosage: 100 MICROGRAM, WEEKLY
     Route: 042
     Dates: start: 20230112
  15. VENOFER [Concomitant]
     Active Substance: IRON SUCROSE
     Indication: Nephrogenic anaemia
     Dosage: 100 MILLIGRAM, Q3W
     Route: 042
     Dates: start: 20210818

REACTIONS (2)
  - Dehydration [Unknown]
  - Viral infection [Recovered/Resolved]

NARRATIVE: CASE EVENT DATE: 20250123
